FAERS Safety Report 13252610 (Version 2)
Quarter: 2017Q2

REPORT INFORMATION
  Report Type: Spontaneous
  Country: US (occurrence: US)
  Receive Date: 20170220
  Receipt Date: 20170410
  Transmission Date: 20170830
  Serious: No
  Sender: FDA-Public Use
  Company Number: US-ASTRAZENECA-2017SE15475

PATIENT
  Age: 25744 Day
  Sex: Male
  Weight: 120.2 kg

DRUGS (9)
  1. SYMBICORT [Suspect]
     Active Substance: BUDESONIDE\FORMOTEROL FUMARATE DIHYDRATE
     Indication: CHRONIC OBSTRUCTIVE PULMONARY DISEASE
     Route: 055
  2. SYMBICORT [Suspect]
     Active Substance: BUDESONIDE\FORMOTEROL FUMARATE DIHYDRATE
     Indication: CHRONIC OBSTRUCTIVE PULMONARY DISEASE
     Route: 055
     Dates: start: 20170207
  3. LISINOPRIL. [Suspect]
     Active Substance: LISINOPRIL
     Indication: PROPHYLAXIS
     Dosage: DAILY
     Route: 048
  4. SYMBICORT [Suspect]
     Active Substance: BUDESONIDE\FORMOTEROL FUMARATE DIHYDRATE
     Indication: EMPHYSEMA
     Route: 055
  5. SYMBICORT [Suspect]
     Active Substance: BUDESONIDE\FORMOTEROL FUMARATE DIHYDRATE
     Indication: EMPHYSEMA
     Route: 055
     Dates: start: 20170207
  6. METFORMIN [Concomitant]
     Active Substance: METFORMIN HYDROCHLORIDE
     Indication: TYPE 2 DIABETES MELLITUS
     Route: 048
  7. MELATONIN [Concomitant]
     Active Substance: MELATONIN
     Indication: SLEEP DISORDER
     Route: 048
     Dates: start: 2016
  8. LISINOPRIL. [Suspect]
     Active Substance: LISINOPRIL
     Indication: BLOOD PRESSURE MEASUREMENT
     Dosage: DAILY
     Route: 048
  9. CENTRUM SILVER MULTIVITAMIN [Concomitant]
     Indication: PROPHYLAXIS
     Dosage: DAILY
     Route: 048
     Dates: start: 2014

REACTIONS (11)
  - Malaise [Unknown]
  - Product use in unapproved indication [Unknown]
  - Chronic obstructive pulmonary disease [Unknown]
  - Intentional device misuse [Recovered/Resolved]
  - Type 2 diabetes mellitus [Unknown]
  - Emphysema [Unknown]
  - Loss of personal independence in daily activities [Not Recovered/Not Resolved]
  - Drug ineffective [Unknown]
  - Off label use [Unknown]
  - Dyspnoea [Not Recovered/Not Resolved]
  - Viral upper respiratory tract infection [Recovering/Resolving]

NARRATIVE: CASE EVENT DATE: 20170205
